FAERS Safety Report 4609276-9 (Version None)
Quarter: 2005Q1

REPORT INFORMATION
  Report Type: 
  Country: None (occurrence: None)
  Receive Date: 20050314
  Receipt Date: 20050308
  Transmission Date: 20050727
  Serious: Yes (Life-Threatening)
  Sender: FDA-Public Use
  Company Number: 200510095BYL

PATIENT
  Age: 87 Year
  Sex: Female
  Weight: 34 kg

DRUGS (14)
  1. CIPRO IV [Suspect]
     Indication: PNEUMONIA
     Dosage: 300 MG, QD, INTRAVENOUS DRIP
     Route: 041
     Dates: start: 20050212, end: 20050218
  2. INSULIN [Concomitant]
  3. HABEKACIN [Concomitant]
  4. OMEGACIN [Concomitant]
  5. TARGOCID [Concomitant]
  6. SIGMART [Concomitant]
  7. MILRILA [Concomitant]
  8. ASPIRIN [Concomitant]
  9. DIOVAN [Concomitant]
  10. MARZULENE S [Concomitant]
  11. ITOROL [Concomitant]
  12. NORVASC [Concomitant]
  13. MUCODYNE [Concomitant]
  14. NITRODERM [Concomitant]

REACTIONS (1)
  - HYPOGLYCAEMIA [None]
